FAERS Safety Report 9659608 (Version 1)
Quarter: 2013Q4

REPORT INFORMATION
  Report Type: Spontaneous
  Country: US (occurrence: US)
  Receive Date: 20131031
  Receipt Date: 20131031
  Transmission Date: 20140711
  Serious: No
  Sender: FDA-Public Use
  Company Number: US-BAYER-2013-129076

PATIENT
  Sex: Female

DRUGS (2)
  1. BEYAZ [Suspect]
  2. CEPHALEXIN [Interacting]

REACTIONS (1)
  - Drug interaction [None]
